FAERS Safety Report 6676746-1 (Version None)
Quarter: 2010Q2

REPORT INFORMATION
  Report Type: 
  Country: None (occurrence: None)
  Receive Date: 20100412
  Receipt Date: 20100402
  Transmission Date: 20101027
  Serious: Yes (Other)
  Sender: FDA-Public Use
  Company Number: US-ROCHE-692588

PATIENT
  Sex: Female

DRUGS (6)
  1. BONIVA [Suspect]
     Indication: OSTEOPOROSIS
     Route: 048
     Dates: start: 20091208
  2. HYDROCHLOROTHIAZIDE [Concomitant]
  3. CLONIDINE [Concomitant]
     Dosage: DRUG REPORTED: CLONADINE
  4. LISINOPRIL [Concomitant]
  5. AMLODIPINE [Concomitant]
  6. CITALOPRAM HYDROBROMIDE [Concomitant]
     Indication: DEPRESSION
     Route: 048
     Dates: start: 20091208

REACTIONS (1)
  - PAIN IN JAW [None]
